FAERS Safety Report 5270271-0 (Version None)
Quarter: 2007Q1

REPORT INFORMATION
  Report Type: 
  Country: None (occurrence: None)
  Receive Date: 20070320
  Receipt Date: 20070313
  Transmission Date: 20070707
  Serious: Yes (Hospitalization, Other)
  Sender: FDA-Public Use
  Company Number: US-ELI_LILLY_AND_COMPANY-US200703002939

PATIENT
  Sex: Female

DRUGS (2)
  1. HUMALOG [Suspect]
     Indication: INSULIN RESISTANT DIABETES
     Dosage: 25 U, 4/D
     Dates: start: 20030101
  2. LANTUS [Concomitant]
     Dosage: 45 U, EACH EVENING

REACTIONS (9)
  - BLOOD GLUCOSE DECREASED [None]
  - BLOOD POTASSIUM DECREASED [None]
  - CARBON DIOXIDE ABNORMAL [None]
  - CARDIAC DISORDER [None]
  - CARDIOMEGALY [None]
  - CHRONIC OBSTRUCTIVE PULMONARY DISEASE [None]
  - DEHYDRATION [None]
  - DEPRESSED MOOD [None]
  - PULMONARY FUNCTION TEST DECREASED [None]
